FAERS Safety Report 13517433 (Version 3)
Quarter: 2017Q2

REPORT INFORMATION
  Report Type: Spontaneous
  Country: CN (occurrence: CN)
  Receive Date: 20170505
  Receipt Date: 20170519
  Transmission Date: 20170830
  Serious: Yes (Other)
  Sender: FDA-Public Use
  Company Number: CN-PFIZER INC-2017199176

PATIENT
  Age: 40 Year
  Sex: Male

DRUGS (1)
  1. PANTOLOC [Suspect]
     Active Substance: PANTOPRAZOLE SODIUM
     Dosage: UNK

REACTIONS (1)
  - Blindness unilateral [Recovering/Resolving]

NARRATIVE: CASE EVENT DATE: 20170428
